FAERS Safety Report 25983492 (Version 1)
Quarter: 2025Q4

REPORT INFORMATION
  Report Type: Spontaneous
  Country: EU (occurrence: EU)
  Receive Date: 20251031
  Receipt Date: 20251031
  Transmission Date: 20260118
  Serious: Yes (Other)
  Sender: MYLAN
  Company Number: EU-MYLANLABS-2025M1092308

PATIENT
  Age: 63 Year
  Sex: Female

DRUGS (52)
  1. DOXORUBICIN [Suspect]
     Active Substance: DOXORUBICIN
     Indication: Ovarian endometrioid carcinoma
     Dosage: UNK, LIPOSOMAL, THERAPY WAS SWITCHED TO TAMOXIFEN
  2. DOXORUBICIN [Suspect]
     Active Substance: DOXORUBICIN
     Dosage: UNK, LIPOSOMAL, THERAPY WAS SWITCHED TO TAMOXIFEN
     Route: 065
  3. DOXORUBICIN [Suspect]
     Active Substance: DOXORUBICIN
     Dosage: UNK, LIPOSOMAL, THERAPY WAS SWITCHED TO TAMOXIFEN
     Route: 065
  4. DOXORUBICIN [Suspect]
     Active Substance: DOXORUBICIN
     Dosage: UNK, LIPOSOMAL, THERAPY WAS SWITCHED TO TAMOXIFEN
  5. EPIRUBICIN [Suspect]
     Active Substance: EPIRUBICIN
     Indication: Ovarian endometrioid carcinoma
     Dosage: UNK
  6. EPIRUBICIN [Suspect]
     Active Substance: EPIRUBICIN
     Dosage: UNK
     Route: 065
  7. EPIRUBICIN [Suspect]
     Active Substance: EPIRUBICIN
     Dosage: UNK
     Route: 065
  8. EPIRUBICIN [Suspect]
     Active Substance: EPIRUBICIN
     Dosage: UNK
  9. LETROZOLE [Suspect]
     Active Substance: LETROZOLE
     Indication: Ovarian endometrioid carcinoma
     Dosage: UNK
  10. LETROZOLE [Suspect]
     Active Substance: LETROZOLE
     Dosage: UNK
     Route: 065
  11. LETROZOLE [Suspect]
     Active Substance: LETROZOLE
     Dosage: UNK
     Route: 065
  12. LETROZOLE [Suspect]
     Active Substance: LETROZOLE
     Dosage: UNK
  13. CYCLOPHOSPHAMIDE [Suspect]
     Active Substance: CYCLOPHOSPHAMIDE
     Indication: Ovarian endometrioid carcinoma
     Dosage: UNK
  14. CYCLOPHOSPHAMIDE [Suspect]
     Active Substance: CYCLOPHOSPHAMIDE
     Dosage: UNK
     Route: 065
  15. CYCLOPHOSPHAMIDE [Suspect]
     Active Substance: CYCLOPHOSPHAMIDE
     Dosage: UNK
     Route: 065
  16. CYCLOPHOSPHAMIDE [Suspect]
     Active Substance: CYCLOPHOSPHAMIDE
     Dosage: UNK
  17. PALBOCICLIB [Suspect]
     Active Substance: PALBOCICLIB
     Indication: Ovarian endometrioid carcinoma
     Dosage: UNK
  18. PALBOCICLIB [Suspect]
     Active Substance: PALBOCICLIB
     Dosage: UNK
     Route: 065
  19. PALBOCICLIB [Suspect]
     Active Substance: PALBOCICLIB
     Dosage: UNK
     Route: 065
  20. PALBOCICLIB [Suspect]
     Active Substance: PALBOCICLIB
     Dosage: UNK
  21. PEMBROLIZUMAB [Suspect]
     Active Substance: PEMBROLIZUMAB
     Indication: Ovarian endometrioid carcinoma
     Dosage: UNK, THERAPY WAS INITIALLY PAUSED LATER DISCONTINUED
  22. PEMBROLIZUMAB [Suspect]
     Active Substance: PEMBROLIZUMAB
     Dosage: UNK, THERAPY WAS INITIALLY PAUSED LATER DISCONTINUED
     Route: 065
  23. PEMBROLIZUMAB [Suspect]
     Active Substance: PEMBROLIZUMAB
     Dosage: UNK, THERAPY WAS INITIALLY PAUSED LATER DISCONTINUED
     Route: 065
  24. PEMBROLIZUMAB [Suspect]
     Active Substance: PEMBROLIZUMAB
     Dosage: UNK, THERAPY WAS INITIALLY PAUSED LATER DISCONTINUED
  25. LENVATINIB [Suspect]
     Active Substance: LENVATINIB
     Indication: Ovarian endometrioid carcinoma
     Dosage: UNK, THERAPY WAS INITIALLY PAUSED LATER DISCONTINUED
  26. LENVATINIB [Suspect]
     Active Substance: LENVATINIB
     Dosage: UNK, THERAPY WAS INITIALLY PAUSED LATER DISCONTINUED
  27. LENVATINIB [Suspect]
     Active Substance: LENVATINIB
     Dosage: UNK, THERAPY WAS INITIALLY PAUSED LATER DISCONTINUED
     Route: 065
  28. LENVATINIB [Suspect]
     Active Substance: LENVATINIB
     Dosage: UNK, THERAPY WAS INITIALLY PAUSED LATER DISCONTINUED
     Route: 065
  29. LENVATINIB [Suspect]
     Active Substance: LENVATINIB
     Dosage: UNK, REDUCED DOSE, THERAPY WAS INITIALLY PAUSED LATER DISCONTINUED
  30. LENVATINIB [Suspect]
     Active Substance: LENVATINIB
     Dosage: UNK, REDUCED DOSE, THERAPY WAS INITIALLY PAUSED LATER DISCONTINUED
  31. LENVATINIB [Suspect]
     Active Substance: LENVATINIB
     Dosage: UNK, REDUCED DOSE, THERAPY WAS INITIALLY PAUSED LATER DISCONTINUED
     Route: 065
  32. LENVATINIB [Suspect]
     Active Substance: LENVATINIB
     Dosage: UNK, REDUCED DOSE, THERAPY WAS INITIALLY PAUSED LATER DISCONTINUED
     Route: 065
  33. CARBOPLATIN [Suspect]
     Active Substance: CARBOPLATIN
     Indication: Ovarian endometrioid carcinoma
     Dosage: UNK, THERAPY WAS SWITCHED TO DOXORUBICIN-LIPOSOMAL
  34. CARBOPLATIN [Suspect]
     Active Substance: CARBOPLATIN
     Dosage: UNK, THERAPY WAS SWITCHED TO DOXORUBICIN-LIPOSOMAL
     Route: 065
  35. CARBOPLATIN [Suspect]
     Active Substance: CARBOPLATIN
     Dosage: UNK, THERAPY WAS SWITCHED TO DOXORUBICIN-LIPOSOMAL
     Route: 065
  36. CARBOPLATIN [Suspect]
     Active Substance: CARBOPLATIN
     Dosage: UNK, THERAPY WAS SWITCHED TO DOXORUBICIN-LIPOSOMAL
  37. GEMCITABINE [Suspect]
     Active Substance: GEMCITABINE
     Indication: Ovarian endometrioid carcinoma
     Dosage: UNK, THERAPY WAS SWITCHED TO DOXORUBICIN-LIPOSOMAL
  38. GEMCITABINE [Suspect]
     Active Substance: GEMCITABINE
     Dosage: UNK, THERAPY WAS SWITCHED TO DOXORUBICIN-LIPOSOMAL
     Route: 065
  39. GEMCITABINE [Suspect]
     Active Substance: GEMCITABINE
     Dosage: UNK, THERAPY WAS SWITCHED TO DOXORUBICIN-LIPOSOMAL
     Route: 065
  40. GEMCITABINE [Suspect]
     Active Substance: GEMCITABINE
     Dosage: UNK, THERAPY WAS SWITCHED TO DOXORUBICIN-LIPOSOMAL
  41. TAMOXIFEN [Suspect]
     Active Substance: TAMOXIFEN
     Indication: Ovarian endometrioid carcinoma
     Dosage: UNK, FOR 4 MONTHS
  42. TAMOXIFEN [Suspect]
     Active Substance: TAMOXIFEN
     Dosage: UNK, FOR 4 MONTHS
     Route: 065
  43. TAMOXIFEN [Suspect]
     Active Substance: TAMOXIFEN
     Dosage: UNK, FOR 4 MONTHS
     Route: 065
  44. TAMOXIFEN [Suspect]
     Active Substance: TAMOXIFEN
     Dosage: UNK, FOR 4 MONTHS
  45. TOPOTECAN [Suspect]
     Active Substance: TOPOTECAN HYDROCHLORIDE
     Indication: Ovarian endometrioid carcinoma
     Dosage: UNK, ON DAY 1, 8, 15 OF EVERY 28 DAYS CYCLE, THERAPY WAS SWITCHED TO TREOSULFAN
  46. TOPOTECAN [Suspect]
     Active Substance: TOPOTECAN HYDROCHLORIDE
     Dosage: UNK, ON DAY 1, 8, 15 OF EVERY 28 DAYS CYCLE, THERAPY WAS SWITCHED TO TREOSULFAN
     Route: 065
  47. TOPOTECAN [Suspect]
     Active Substance: TOPOTECAN HYDROCHLORIDE
     Dosage: UNK, ON DAY 1, 8, 15 OF EVERY 28 DAYS CYCLE, THERAPY WAS SWITCHED TO TREOSULFAN
     Route: 065
  48. TOPOTECAN [Suspect]
     Active Substance: TOPOTECAN HYDROCHLORIDE
     Dosage: UNK, ON DAY 1, 8, 15 OF EVERY 28 DAYS CYCLE, THERAPY WAS SWITCHED TO TREOSULFAN
  49. TREOSULFAN [Suspect]
     Active Substance: TREOSULFAN
     Indication: Ovarian endometrioid carcinoma
     Dosage: UNK, THERAPY WAS SWITCHED TO EPIRUBICIN AND CYCLOPHOSPHAMIDE
  50. TREOSULFAN [Suspect]
     Active Substance: TREOSULFAN
     Dosage: UNK, THERAPY WAS SWITCHED TO EPIRUBICIN AND CYCLOPHOSPHAMIDE
     Route: 048
  51. TREOSULFAN [Suspect]
     Active Substance: TREOSULFAN
     Dosage: UNK, THERAPY WAS SWITCHED TO EPIRUBICIN AND CYCLOPHOSPHAMIDE
     Route: 048
  52. TREOSULFAN [Suspect]
     Active Substance: TREOSULFAN
     Dosage: UNK, THERAPY WAS SWITCHED TO EPIRUBICIN AND CYCLOPHOSPHAMIDE

REACTIONS (3)
  - Disease progression [Unknown]
  - Drug ineffective [Unknown]
  - Off label use [Unknown]
